FAERS Safety Report 9352408 (Version 2)
Quarter: 2013Q3

REPORT INFORMATION
  Report Type: Spontaneous
  Country: US (occurrence: US)
  Receive Date: 20130617
  Receipt Date: 20130807
  Transmission Date: 20140515
  Serious: No
  Sender: FDA-Public Use
  Company Number: US-ELI_LILLY_AND_COMPANY-US201306002469

PATIENT
  Sex: Male

DRUGS (1)
  1. FORTEO [Suspect]
     Indication: OSTEOPOROSIS
     Dosage: LESS THAN ONE MONTH, QD
     Dates: start: 2009, end: 2009

REACTIONS (3)
  - Thoracic vertebral fracture [Unknown]
  - Thoracic vertebral fracture [Unknown]
  - Thoracic vertebral fracture [Unknown]
